FAERS Safety Report 6288348-X (Version None)
Quarter: 2009Q3

REPORT INFORMATION
  Report Type: 
  Country: None (occurrence: None)
  Receive Date: 20090729
  Receipt Date: 20090717
  Transmission Date: 20100115
  Serious: Yes (Disabling, Other)
  Sender: FDA-Public Use
  Company Number: PHHY2009FR29729

PATIENT
  Age: 64 Year
  Sex: Female

DRUGS (1)
  1. ACLASTA [Suspect]
     Indication: OSTEOPOROSIS
     Dosage: 5 MG, UNK
     Dates: start: 20090708

REACTIONS (7)
  - ARTHRALGIA [None]
  - BONE PAIN [None]
  - EYE PAIN [None]
  - GAIT DISTURBANCE [None]
  - PAROSMIA [None]
  - PELVIC PAIN [None]
  - PYREXIA [None]
